FAERS Safety Report 6516416-3 (Version None)
Quarter: 2009Q4

REPORT INFORMATION
  Report Type: 
  Country: None (occurrence: None)
  Receive Date: 20091223
  Receipt Date: 20091215
  Transmission Date: 20100525
  Serious: Yes (Other)
  Sender: FDA-Public Use
  Company Number: B0614243A

PATIENT
  Sex: Female

DRUGS (5)
  1. RELENZA [Suspect]
     Indication: INFLUENZA
     Dosage: 10MG TWICE PER DAY
     Route: 055
     Dates: start: 20091125
  2. FLAVERIC [Concomitant]
     Route: 048
  3. CHINESE MEDICINE [Concomitant]
     Route: 048
  4. CALONAL [Concomitant]
     Route: 065
  5. MUCOSTA [Concomitant]
     Route: 048

REACTIONS (1)
  - HALLUCINATION [None]
